FAERS Safety Report 9897503 (Version 2)
Quarter: 2014Q1

REPORT INFORMATION
  Report Type: Spontaneous
  Country: US (occurrence: US)
  Receive Date: 20140214
  Receipt Date: 20140214
  Transmission Date: 20141002
  Serious: Yes (Other)
  Sender: FDA-Public Use
  Company Number: US-GE HEALTHCARE MEDICAL DIAGNOSTICS-OSCN-PR-0902S-0077

PATIENT
  Sex: Male
  Weight: 84 kg

DRUGS (23)
  1. OMNISCAN [Suspect]
     Indication: PRODUCT USED FOR UNKNOWN INDICATION
  2. MAGNEVIST [Suspect]
     Indication: PRODUCT USED FOR UNKNOWN INDICATION
  3. OPTIMARK [Suspect]
     Indication: PRODUCT USED FOR UNKNOWN INDICATION
  4. MULTIHANCE [Suspect]
     Indication: PRODUCT USED FOR UNKNOWN INDICATION
  5. PROHANCE [Suspect]
     Indication: PRODUCT USED FOR UNKNOWN INDICATION
  6. METOPROLOL [Concomitant]
  7. PROGRAF [Concomitant]
  8. PLAVIX [Concomitant]
  9. STEROID ANTIBACTERIALS [Concomitant]
  10. CELLCEPT [Concomitant]
  11. NORVASC [Concomitant]
  12. ALPRAZOLAM [Concomitant]
  13. BUMETANIDE [Concomitant]
  14. CARISOPRODOL [Concomitant]
  15. GLIPIZIDE [Concomitant]
  16. CIPROFLOXACIN [Concomitant]
  17. SULFAMETHOXAZOLE [Concomitant]
  18. HYDROCODONE [Concomitant]
  19. PREDNISONE [Concomitant]
  20. DYNACIRC [Concomitant]
  21. TOPROL XL [Concomitant]
  22. PRAVACHOL [Concomitant]
  23. GLYBURIDE [Concomitant]

REACTIONS (1)
  - Nephrogenic systemic fibrosis [Not Recovered/Not Resolved]
